FAERS Safety Report 7407640-6 (Version None)
Quarter: 2011Q2

REPORT INFORMATION
  Report Type: 
  Country: None (occurrence: None)
  Receive Date: 20110401
  Receipt Date: 20110318
  Transmission Date: 20111010
  Serious: Yes (Hospitalization)
  Sender: FDA-Public Use
  Company Number: 029593

PATIENT
  Sex: Male
  Weight: 66.5 kg

DRUGS (4)
  1. THIOPRINE [Concomitant]
  2. COVERSYL [Concomitant]
  3. MESASAL [Concomitant]
  4. CERTOLIZUMAB PEGOL (CERTOLIZUMAB PEGOL) [Suspect]
     Indication: CROHN'S DISEASE
     Dosage: 9400 MG 1X/2 WEEKS, FIRST 3 DOSES SUBCUTANEOUS), (400 MG 1X/MONTH SUBCUTANEOUS)
     Route: 058
     Dates: start: 20040908

REACTIONS (5)
  - BACK PAIN [None]
  - CALCULUS URETERIC [None]
  - VOMITING [None]
  - NAUSEA [None]
  - URETERIC OBSTRUCTION [None]
